FAERS Safety Report 7753673-X (Version None)
Quarter: 2011Q3

REPORT INFORMATION
  Report Type: 
  Country: None (occurrence: None)
  Receive Date: 20110915
  Receipt Date: 20110915
  Transmission Date: 20111222
  Serious: No
  Sender: FDA-Public Use
  Company Number: None

PATIENT
  Age: 24 Year
  Sex: Female
  Weight: 113.39 kg

DRUGS (1)
  1. CREST PRO-HEALTH (OTC) [Suspect]

REACTIONS (6)
  - HYPOAESTHESIA ORAL [None]
  - HAEMORRHAGE [None]
  - ORAL MUCOSAL EXFOLIATION [None]
  - LIP EXFOLIATION [None]
  - LIP SWELLING [None]
  - PAIN [None]
